FAERS Safety Report 16664245 (Version 1)
Quarter: 2019Q3

REPORT INFORMATION
  Report Type: Spontaneous
  Country: US (occurrence: US)
  Receive Date: 20190802
  Receipt Date: 20190802
  Transmission Date: 20191004
  Serious: No
  Sender: FDA-Public Use
  Company Number: US-TARO-2019TAR00530

PATIENT
  Age: 14 Year
  Sex: Male

DRUGS (2)
  1. OTC TREEACTIVE ACNE ELIMINATING BASE CLEANSER [Suspect]
     Active Substance: COSMETICS
     Dosage: UNK
     Route: 061
  2. ADAPALENE AND BENZOYL PEROXIDE [Suspect]
     Active Substance: ADAPALENE\BENZOYL PEROXIDE
     Dosage: ^A LOT OF PRODUCT^
     Route: 061
     Dates: start: 201907

REACTIONS (6)
  - Application site erythema [Not Recovered/Not Resolved]
  - Oral discomfort [Not Recovered/Not Resolved]
  - Application site pruritus [Not Recovered/Not Resolved]
  - Incorrect dose administered [Recovered/Resolved]
  - Lip erythema [Not Recovered/Not Resolved]
  - Application site pain [Not Recovered/Not Resolved]

NARRATIVE: CASE EVENT DATE: 201907
